FAERS Safety Report 6255932-9 (Version None)
Quarter: 2009Q3

REPORT INFORMATION
  Report Type: 
  Country: None (occurrence: None)
  Receive Date: 20090706
  Receipt Date: 20071120
  Transmission Date: 20100115
  Serious: Yes (Hospitalization, Other)
  Sender: FDA-Public Use
  Company Number: US-ASTRAZENECA-2007UW13916

PATIENT
  Age: 14295 Day
  Sex: Male

DRUGS (15)
  1. SEROQUEL [Suspect]
     Indication: SLEEP DISORDER
     Route: 048
     Dates: start: 20000815, end: 20020106
  2. SEROQUEL [Suspect]
     Dosage: 300 - 800 MG DAILY
     Route: 048
     Dates: start: 20020104
  3. ZOLOFT [Concomitant]
     Dosage: 50 MG - 100 MG DAILY
     Dates: start: 20020618
  4. WELLBUTRIN SR [Concomitant]
     Dosage: 100 MG - 200 MG DAILY
     Dates: start: 20020125
  5. XANAX [Concomitant]
     Indication: ANXIETY
     Dosage: 1 MG - 4 MG DAILY
     Dates: start: 20020104
  6. RISPERDAL [Concomitant]
     Dosage: 9 MG - 12 MG DAILY
     Dates: start: 20020104
  7. ABILIFY [Concomitant]
     Dosage: 15 MG - 30 MG DAILY
     Dates: start: 20030111
  8. DEPAKOTE [Concomitant]
     Dosage: 250 MG - 500 MG DAILY
     Dates: start: 20020104
  9. TOPAMAX [Concomitant]
     Dates: start: 20020219
  10. HYOSCYAMINE [Concomitant]
     Dosage: 1 TABLET EVERY 4 TO 6 HOURS
     Dates: start: 20020314
  11. TRILEPTAL [Concomitant]
     Dosage: 600 MG - 900 MG DAILY
     Dates: start: 20040308
  12. TEMAZEPAM [Concomitant]
  13. CLONAZEPAM [Concomitant]
     Dosage: 1 MG - 3 MG DAILY
     Dates: start: 20041101
  14. LEVAQUIN [Concomitant]
  15. PROTONIX [Concomitant]
     Indication: ABDOMINAL DISCOMFORT
     Dates: start: 20041101

REACTIONS (7)
  - ALCOHOLIC PANCREATITIS [None]
  - HYPONATRAEMIA [None]
  - PANCREATIC PSEUDOCYST [None]
  - PANCREATITIS ACUTE [None]
  - PORTAL VEIN THROMBOSIS [None]
  - SPLENIC VEIN THROMBOSIS [None]
  - SPLENOMEGALY [None]
